FAERS Safety Report 10362918 (Version 1)
Quarter: 2014Q1

REPORT INFORMATION
  Report Type: Spontaneous
  Country: US (occurrence: None)
  Receive Date: 20140306
  Receipt Date: 20140306
  Transmission Date: 20141002
  Serious: Yes (Hospitalization)
  Sender: FDA-Public Use
  Company Number: 163-21880-13073882

PATIENT
  Sex: Male
  Weight: 90.3 kg

DRUGS (9)
  1. REVLIMID (LENALIDOMIDE) (25 MILLIGRAM, CAPSULES) [Suspect]
     Indication: PLASMA CELL MYELOMA
     Route: 048
     Dates: start: 201212
  2. DEXAMETHASONE (UNKNOWN) [Concomitant]
  3. DILTIAZEM (TABLETS) [Concomitant]
  4. ASPIRIN (ACETYLSALICYLIC ACID) (CHEWABLE TABLET) [Concomitant]
  5. VITAMIN D (ERGOCALCIFEROL) (UNKNOWN) [Concomitant]
  6. FISH OIL (UNKNOWN) [Concomitant]
  7. MULTIVITAMINS (UNKNOWN) [Concomitant]
  8. RAMIPRIL (UNKNOWN) [Concomitant]
  9. ALFUZOSIN HCL (ALFUZOSIN HYDROCHLORIDE) (UNKNOWN) [Concomitant]

REACTIONS (5)
  - Renal failure [None]
  - Platelet count abnormal [None]
  - Bone disorder [None]
  - Blood urine present [None]
  - Contusion [None]
